FAERS Safety Report 7286941-9 (Version None)
Quarter: 2011Q1

REPORT INFORMATION
  Report Type: 
  Country: None (occurrence: None)
  Receive Date: 20110211
  Receipt Date: 20110203
  Transmission Date: 20110831
  Serious: Yes (Hospitalization)
  Sender: FDA-Public Use
  Company Number: US-BIOGENIDEC-2011BI002303

PATIENT
  Age: 61 Year
  Sex: Female
  Weight: 117 kg

DRUGS (11)
  1. LISINOPRIL [Concomitant]
     Indication: HYPERTENSION
     Dates: start: 19910101
  2. POTASSIUM CHLORIDE [Concomitant]
     Indication: HYPERTENSION
     Dates: start: 19910101
  3. LYRICA [Concomitant]
     Indication: FIBROMYALGIA
     Dates: start: 19960101
  4. NEURONTIN [Concomitant]
     Indication: FIBROMYALGIA
     Dates: start: 19960101
  5. KLONOPIN [Concomitant]
  6. LASIX [Concomitant]
     Indication: HYPERTENSION
     Dates: start: 19910101
  7. METOPROLOL [Concomitant]
     Indication: HYPERTENSION
     Dates: start: 19910101
  8. AVONEX [Suspect]
     Indication: MULTIPLE SCLEROSIS
     Route: 030
     Dates: start: 20100419
  9. BACLOFEN [Concomitant]
     Indication: FIBROMYALGIA
     Dates: start: 19960101
  10. CYMBALTA [Concomitant]
     Indication: DEPRESSION
  11. PREVACID [Concomitant]
     Indication: BARRETT'S OESOPHAGUS
     Dates: start: 20050101

REACTIONS (7)
  - ARTHROPATHY [None]
  - ANXIETY [None]
  - PYREXIA [None]
  - CELLULITIS [None]
  - FALL [None]
  - DELAYED RECOVERY FROM ANAESTHESIA [None]
  - DRUG WITHDRAWAL SYNDROME [None]
